FAERS Safety Report 7251030-6 (Version None)
Quarter: 2011Q1

REPORT INFORMATION
  Report Type: 
  Country: None (occurrence: None)
  Receive Date: 20110128
  Receipt Date: 20110120
  Transmission Date: 20110831
  Serious: Yes (Hospitalization)
  Sender: FDA-Public Use
  Company Number: Z0003388A

PATIENT
  Age: 73 Year
  Sex: Male
  Weight: 96.4 kg

DRUGS (3)
  1. ASA [Concomitant]
     Indication: SUPPLEMENTATION THERAPY
     Dosage: 81MG PER DAY
     Route: 048
     Dates: start: 20090101, end: 20100223
  2. OXYCODONE HCL [Concomitant]
     Indication: PAIN
     Dosage: 5MG AS REQUIRED
     Route: 048
     Dates: start: 20100222
  3. PAZOPANIB [Suspect]
     Indication: RENAL CELL CARCINOMA
     Dosage: 800MG PER DAY
     Route: 048
     Dates: start: 20100120

REACTIONS (1)
  - HYPERTENSIVE CRISIS [None]
